FAERS Safety Report 5028709-X (Version None)
Quarter: 2006Q2

REPORT INFORMATION
  Report Type: 
  Country: None (occurrence: None)
  Receive Date: 20060501
  Receipt Date: 20051215
  Transmission Date: 20061013
  Serious: No
  Sender: FDA-Public Use
  Company Number: 2005PV005928

PATIENT
  Age: 62 Year
  Sex: Male
  Weight: 129.7287 kg

DRUGS (4)
  1. SYMLIN [Suspect]
     Indication: DIABETES MELLITUS NON-INSULIN-DEPENDENT
     Dosage: 60 MCG;PRN;SC
     Route: 058
     Dates: start: 20051212
  2. INSULIN LISPRO [Concomitant]
  3. LANTUS [Concomitant]
  4. GLUCOPHAGE [Concomitant]

REACTIONS (1)
  - BLOOD GLUCOSE INCREASED [None]
